FAERS Safety Report 8765642 (Version 1)
Quarter: 2012Q4

REPORT INFORMATION
  Report Type: 
  Country: MX (occurrence: MX)
  Receive Date: 20120903
  Receipt Date: 20120903
  Transmission Date: 20130627
  Serious: Yes (Other)
  Sender: FDA-Public Use
  Company Number: PHHY2012MX075440

PATIENT
  Age: 70 Year
  Sex: Male

DRUGS (2)
  1. CO-DIOVAN [Suspect]
     Indication: HYPERTENSION
     Dosage: 1 tablet (160/12.5 mg) daily
     Dates: start: 201207
  2. CARBAMAZEPIN [Concomitant]
     Indication: BLOOD CHOLESTEROL
     Dosage: 2 DF, daily
     Dates: start: 201106

REACTIONS (3)
  - Embolism [Unknown]
  - Blood cholesterol increased [Unknown]
  - Hypertension [Unknown]
